FAERS Safety Report 24284754 (Version 1)
Quarter: 2024Q3

REPORT INFORMATION
  Report Type: Spontaneous
  Country: CA (occurrence: None)
  Receive Date: 20240905
  Receipt Date: 20240905
  Transmission Date: 20241016
  Serious: Yes (Other)
  Sender: ENCUBE ETHICALS
  Company Number: CA-Encube-001303

PATIENT
  Age: 82 Year
  Sex: Male

DRUGS (2)
  1. IMIQUIMOD [Suspect]
     Active Substance: IMIQUIMOD
     Indication: Basal cell carcinoma
  2. IMIQUIMOD [Suspect]
     Active Substance: IMIQUIMOD
     Indication: Product used for unknown indication
     Dosage: USED WITHOUT INCIDENT

REACTIONS (2)
  - Stevens-Johnson syndrome [Recovering/Resolving]
  - Off label use [Unknown]
